FAERS Safety Report 20889818 (Version 2)
Quarter: 2022Q2

REPORT INFORMATION
  Report Type: Spontaneous
  Country: PT (occurrence: PT)
  Receive Date: 20220530
  Receipt Date: 20220606
  Transmission Date: 20220721
  Serious: Yes (Death, Hospitalization, Other)
  Sender: FDA-Public Use
  Company Number: PT-CELLTRION INC.-2022PT007477

PATIENT

DRUGS (4)
  1. RITUXIMAB [Suspect]
     Active Substance: RITUXIMAB
     Indication: Transplant rejection
     Dosage: 120 G (THE PATIENT WAS PRESCRIBED IVIG 120G)
  2. DEXAMETHASONE [Suspect]
     Active Substance: DEXAMETHASONE
     Indication: Product used for unknown indication
     Dosage: UNK
     Dates: start: 20210117
  3. MYCOPHENOLATE MOFETIL [Suspect]
     Active Substance: MYCOPHENOLATE MOFETIL
     Indication: Product used for unknown indication
     Dosage: 500MG TWICE DAILY
  4. REMDESIVIR [Suspect]
     Active Substance: REMDESIVIR
     Indication: Product used for unknown indication
     Dosage: UNK
     Dates: start: 20210117

REACTIONS (7)
  - Aspergillus infection [Fatal]
  - COVID-19 [Fatal]
  - Pseudomonas infection [Fatal]
  - Superinfection bacterial [Fatal]
  - Septic shock [Fatal]
  - Off label use [Fatal]
  - Off label use [Unknown]

NARRATIVE: CASE EVENT DATE: 20210101
